FAERS Safety Report 6016944-3 (Version None)
Quarter: 2008Q4

REPORT INFORMATION
  Report Type: 
  Country: None (occurrence: None)
  Receive Date: 20081219
  Receipt Date: 20041230
  Transmission Date: 20090506
  Serious: No
  Sender: FDA-Public Use
  Company Number: TEST00205000005

PATIENT
  Age: 5 Year

DRUGS (1)
  1. ANDROGEL [Suspect]
     Dosage: DAILY TRANSCUTANEOUS

REACTIONS (2)
  - ACCIDENTAL EXPOSURE [None]
  - BLOOD TESTOSTERONE INCREASED [None]
